FAERS Safety Report 23377770 (Version 1)
Quarter: 2024Q1

REPORT INFORMATION
  Report Type: Spontaneous
  Country: SI (occurrence: SI)
  Receive Date: 20240108
  Receipt Date: 20240108
  Transmission Date: 20240409
  Serious: Yes (Other)
  Sender: FDA-Public Use
  Company Number: SI-009507513-2306SVN007999

PATIENT
  Age: 58 Year
  Sex: Female
  Weight: 70 kg

DRUGS (7)
  1. CARBOPLATIN [Suspect]
     Active Substance: CARBOPLATIN
     Indication: Triple negative breast cancer
     Dosage: UNK, QW
     Route: 065
     Dates: start: 202207, end: 202208
  2. PACLITAXEL [Suspect]
     Active Substance: PACLITAXEL
     Indication: Triple negative breast cancer
     Dosage: UNK, QW
     Route: 065
     Dates: start: 202207, end: 202208
  3. PACLITAXEL [Suspect]
     Active Substance: PACLITAXEL
     Dosage: UNK, QW
     Route: 065
     Dates: start: 202208, end: 202211
  4. PEMBROLIZUMAB [Suspect]
     Active Substance: PEMBROLIZUMAB
     Dosage: 200 MILLIGRAM, CYCLICAL
     Route: 065
     Dates: start: 202208, end: 202211
  5. PEMBROLIZUMAB [Suspect]
     Active Substance: PEMBROLIZUMAB
     Indication: Triple negative breast cancer
     Dosage: 200 MILLIGRAM, Q3W
     Route: 065
     Dates: start: 202207, end: 202208
  6. CYCLOPHOSPHAMIDE [Concomitant]
     Active Substance: CYCLOPHOSPHAMIDE
     Indication: Triple negative breast cancer
     Dosage: UNK
     Route: 065
     Dates: start: 20220501, end: 202207
  7. EPIRUBICIN [Concomitant]
     Active Substance: EPIRUBICIN
     Indication: Triple negative breast cancer
     Dosage: UNK
     Route: 065
     Dates: start: 20220501, end: 202207

REACTIONS (2)
  - Immune-mediated adrenal insufficiency [Recovered/Resolved]
  - Immune-mediated hypothyroidism [Recovered/Resolved with Sequelae]

NARRATIVE: CASE EVENT DATE: 20221101
